FAERS Safety Report 5958397-7 (Version None)
Quarter: 2008Q4

REPORT INFORMATION
  Report Type: 
  Country: None (occurrence: None)
  Receive Date: 20081117
  Receipt Date: 20080722
  Transmission Date: 20090506
  Serious: No
  Sender: FDA-Public Use
  Company Number: 2008S1013469

PATIENT
  Age: 78 Year
  Sex: Female
  Weight: 58.0604 kg

DRUGS (7)
  1. LEVOTHYROXINE SODIUM [Suspect]
     Indication: THYROID DISORDER
     Dosage: 88 UG; DAILY; ORAL
     Route: 048
     Dates: start: 20070101, end: 20080719
  2. LEVOTHYROXINE SODIUM [Suspect]
     Indication: THYROID DISORDER
     Dosage: 75 UG; DAILY; ORAL
     Route: 048
     Dates: start: 20080719
  3. MELOXICAM [Suspect]
     Indication: SCIATICA
     Dosage: 15 MG; DAILY; ORAL
     Route: 048
     Dates: start: 20080620, end: 20080716
  4. WARFARIN SODIUM [Concomitant]
  5. MELOXICAM [Concomitant]
  6. METOPROLOL TARTRATE [Concomitant]
  7. DIGOXIN [Concomitant]

REACTIONS (6)
  - ATRIAL FIBRILLATION [None]
  - DYSPNOEA [None]
  - FATIGUE [None]
  - INTERNATIONAL NORMALISED RATIO INCREASED [None]
  - SWELLING [None]
  - WEIGHT INCREASED [None]
